FAERS Safety Report 19392031 (Version 1)
Quarter: 2021Q2

REPORT INFORMATION
  Report Type: Report from Study
  Country: US (occurrence: US)
  Receive Date: 20210608
  Receipt Date: 20210608
  Transmission Date: 20210717
  Serious: Yes (Hospitalization, Other)
  Sender: FDA-Public Use
  Company Number: US-TAKEDA-US201924212

PATIENT
  Age: 44 Year
  Sex: Female
  Weight: 60 kg

DRUGS (34)
  1. TEDUGLUTIDE [Suspect]
     Active Substance: TEDUGLUTIDE
     Indication: SHORT-BOWEL SYNDROME
     Dosage: 3.0 MILLIGRAM (0.05 MILLIGRAM/KILOGRAM), 7 DOSES PER WEEK
     Route: 065
     Dates: start: 201308, end: 201308
  2. TEDUGLUTIDE [Suspect]
     Active Substance: TEDUGLUTIDE
     Dosage: 3.0 MILLIGRAM (0.05 MILLIGRAM/KILOGRAM), 7 DOSES PER WEEK
     Route: 065
     Dates: start: 201309, end: 201407
  3. ELAVIL [Concomitant]
     Active Substance: AMITRIPTYLINE HYDROCHLORIDE
     Indication: PRODUCT USED FOR UNKNOWN INDICATION
  4. METHADONE [Concomitant]
     Active Substance: METHADONE HYDROCHLORIDE
     Indication: PRODUCT USED FOR UNKNOWN INDICATION
  5. TEDUGLUTIDE [Suspect]
     Active Substance: TEDUGLUTIDE
     Indication: SHORT-BOWEL SYNDROME
     Dosage: 3.0 MILLIGRAM (0.05 MILLIGRAM/KILOGRAM), 7 DOSES PER WEEK
     Route: 065
     Dates: start: 201308, end: 201308
  6. TEDUGLUTIDE [Suspect]
     Active Substance: TEDUGLUTIDE
     Dosage: 3.0 MILLIGRAM (0.05 MILLIGRAM/KILOGRAM), 7 DOSES PER WEEK
     Route: 065
     Dates: start: 20140819, end: 20140903
  7. TEDUGLUTIDE [Suspect]
     Active Substance: TEDUGLUTIDE
     Dosage: 3.0 MILLIGRAM (0.05 MILLIGRAM/KILOGRAM), 7 DOSES PER WEEK
     Route: 065
     Dates: start: 20140819, end: 20140903
  8. TEDUGLUTIDE [Suspect]
     Active Substance: TEDUGLUTIDE
     Dosage: 3.0 MILLIGRAM (0.05 MILLIGRAM/KILOGRAM), 7 DOSES PER WEEK
     Route: 065
     Dates: start: 20140914
  9. CALCIUM [Concomitant]
     Active Substance: CALCIUM
     Indication: OSTEOPENIA
  10. MUCINEX [Concomitant]
     Active Substance: GUAIFENESIN
     Indication: PNEUMONIA
     Dosage: UNK MILLIGRAM
     Route: 048
  11. TEDUGLUTIDE [Suspect]
     Active Substance: TEDUGLUTIDE
     Dosage: 3.0 MILLIGRAM (0.05 MILLIGRAM/KILOGRAM), 7 DOSES PER WEEK
     Route: 065
     Dates: start: 201309, end: 201407
  12. TEDUGLUTIDE [Suspect]
     Active Substance: TEDUGLUTIDE
     Dosage: 3.0 MILLIGRAM (0.05 MILLIGRAM/KILOGRAM), 7 DOSES PER WEEK
     Route: 065
     Dates: start: 201309, end: 201407
  13. TEDUGLUTIDE [Suspect]
     Active Substance: TEDUGLUTIDE
     Dosage: 3.0 MILLIGRAM (0.05 MILLIGRAM/KILOGRAM), 7 DOSES PER WEEK
     Route: 065
     Dates: start: 20140819, end: 20140903
  14. FLOVENT [Concomitant]
     Active Substance: FLUTICASONE PROPIONATE
     Indication: ASTHMA
  15. TEDUGLUTIDE [Suspect]
     Active Substance: TEDUGLUTIDE
     Indication: SHORT-BOWEL SYNDROME
     Dosage: 3.0 MILLIGRAM (0.05 MILLIGRAM/KILOGRAM), 7 DOSES PER WEEK
     Route: 065
     Dates: start: 201308, end: 201308
  16. TEDUGLUTIDE [Suspect]
     Active Substance: TEDUGLUTIDE
     Dosage: 3.0 MILLIGRAM (0.05 MILLIGRAM/KILOGRAM), 7 DOSES PER WEEK
     Route: 065
     Dates: start: 20140914
  17. TEDUGLUTIDE [Suspect]
     Active Substance: TEDUGLUTIDE
     Dosage: 3.0 MILLIGRAM (0.05 MILLIGRAM/KILOGRAM), 7 DOSES PER WEEK
     Route: 065
     Dates: start: 20140914
  18. VITAMIN A [Concomitant]
     Active Substance: VITAMIN A
     Indication: VITAMIN A DEFICIENCY
     Dosage: 2400 MICROGRAM, BID
     Route: 048
     Dates: start: 202001
  19. TEDUGLUTIDE [Suspect]
     Active Substance: TEDUGLUTIDE
     Indication: SHORT-BOWEL SYNDROME
     Dosage: 3.0 MILLIGRAM (0.05 MILLIGRAM/KILOGRAM), 7 DOSES PER WEEK
     Route: 065
     Dates: start: 201308, end: 201308
  20. TEDUGLUTIDE [Suspect]
     Active Substance: TEDUGLUTIDE
     Dosage: 3.0 MILLIGRAM (0.05 MILLIGRAM/KILOGRAM), 7 DOSES PER WEEK
     Route: 065
     Dates: start: 20140914
  21. VITAMIN B12 [Concomitant]
     Active Substance: CYANOCOBALAMIN
     Indication: NUTRITIONAL SUPPLEMENTATION
  22. OSCAL [Concomitant]
     Active Substance: CALCIUM CARBONATE
     Indication: PRODUCT USED FOR UNKNOWN INDICATION
  23. ALBUTEROL HFA [Concomitant]
     Active Substance: ALBUTEROL SULFATE
     Indication: PRODUCT USED FOR UNKNOWN INDICATION
  24. MUCINEX [Concomitant]
     Active Substance: GUAIFENESIN
     Dosage: 600 MILLIGRAM, BID
     Route: 048
     Dates: start: 20180411, end: 20180417
  25. VITAMIN E [Concomitant]
     Active Substance: .ALPHA.-TOCOPHEROL
     Indication: VITAMIN E DEFICIENCY
     Dosage: 400 INTERNATIONAL UNIT, QD
     Route: 048
     Dates: start: 202001
  26. TEDUGLUTIDE [Suspect]
     Active Substance: TEDUGLUTIDE
     Dosage: 3.0 MILLIGRAM (0.05 MILLIGRAM/KILOGRAM), 7 DOSES PER WEEK
     Route: 065
     Dates: start: 20140819, end: 20140903
  27. LIORESAL [Concomitant]
     Active Substance: BACLOFEN
     Indication: PRODUCT USED FOR UNKNOWN INDICATION
  28. PROTONIX [Concomitant]
     Active Substance: PANTOPRAZOLE SODIUM
     Indication: PRODUCT USED FOR UNKNOWN INDICATION
  29. CYANOCOBALAMINE [Concomitant]
     Active Substance: CYANOCOBALAMIN
     Indication: PRODUCT USED FOR UNKNOWN INDICATION
  30. TEDUGLUTIDE [Suspect]
     Active Substance: TEDUGLUTIDE
     Dosage: 3.0 MILLIGRAM (0.05 MILLIGRAM/KILOGRAM), 7 DOSES PER WEEK
     Route: 065
     Dates: start: 201309, end: 201407
  31. JOLESSA [Concomitant]
     Active Substance: ETHINYL ESTRADIOL\LEVONORGESTREL
     Indication: CONTRACEPTION
  32. SEASONALE [Concomitant]
     Active Substance: ETHINYL ESTRADIOL\LEVONORGESTREL
     Indication: PRODUCT USED FOR UNKNOWN INDICATION
  33. PERCOCET [Concomitant]
     Active Substance: ACETAMINOPHEN\OXYCODONE HYDROCHLORIDE
     Indication: PAIN
  34. VICODIN [Concomitant]
     Active Substance: ACETAMINOPHEN\HYDROCODONE BITARTRATE
     Indication: PAIN
     Dosage: 999 UNK
     Route: 065
     Dates: start: 20190717

REACTIONS (1)
  - Pneumonia [Recovered/Resolved]

NARRATIVE: CASE EVENT DATE: 20180409
